FAERS Safety Report 10446944 (Version 1)
Quarter: 2014Q3

REPORT INFORMATION
  Report Type: Spontaneous
  Country: GB (occurrence: GB)
  Receive Date: 20140911
  Receipt Date: 20140911
  Transmission Date: 20150326
  Serious: Yes (Death)
  Sender: FDA-Public Use
  Company Number: GB-ASTELLAS-2014EU012331

PATIENT
  Age: 61 Year
  Sex: Female

DRUGS (2)
  1. ADOPORT [Concomitant]
     Active Substance: TACROLIMUS
     Indication: PRODUCT USED FOR UNKNOWN INDICATION
     Dosage: UNK UNK, UNKNOWN FREQ.
     Route: 065
  2. MODIGRAF [Suspect]
     Active Substance: TACROLIMUS
     Indication: PRODUCT USED FOR UNKNOWN INDICATION
     Dosage: 5 MG MORNING AND 4 MG EVENING DOSE. 5 SACHETS RECONSTITUTED WITH 15 ML WATER FOR MORNING DOSE
     Route: 065

REACTIONS (1)
  - Death [Fatal]
